FAERS Safety Report 9165359 (Version 1)
Quarter: 2013Q1

REPORT INFORMATION
  Report Type: Spontaneous
  Country: US (occurrence: None)
  Receive Date: 20130314
  Receipt Date: 20130314
  Transmission Date: 20140127
  Serious: No
  Sender: FDA-Public Use
  Company Number: None

PATIENT
  Age: 82 Year
  Sex: Male

DRUGS (8)
  1. REVLIMID [Suspect]
     Dosage: 15 MG DAILY X 21/28 DAYS BY MOUTH
     Route: 048
     Dates: start: 201212
  2. DEXAMETHASONE [Concomitant]
  3. ASA [Concomitant]
  4. AMLODIPINE [Concomitant]
  5. ENALAPRIL [Concomitant]
  6. HCTZ [Concomitant]
  7. ATENOLOL [Concomitant]
  8. ALLOPURINOL [Concomitant]

REACTIONS (1)
  - Neutropenia [None]
